FAERS Safety Report 9830903 (Version 1)
Quarter: 2014Q1

REPORT INFORMATION
  Report Type: Report from Study
  Country: US (occurrence: US)
  Receive Date: 20140120
  Receipt Date: 20140120
  Transmission Date: 20141002
  Serious: Yes (Other)
  Sender: FDA-Public Use
  Company Number: PHEH2014US001108

PATIENT
  Age: 78 Year
  Sex: Male
  Weight: 101.59 kg

DRUGS (14)
  1. ZOMETA [Suspect]
     Dosage: 4 MG PER 5 ML, VIAL
  2. CENTRUM SILVER [Concomitant]
     Dosage: UNK UKN, UNK
  3. PROTONIX [Concomitant]
     Dosage: 20 MG, UNK
  4. AVAPRO [Concomitant]
     Dosage: 150 MG, UNK
  5. ATENOLOL [Concomitant]
     Dosage: 25 MG, UNK
  6. PAROXETINE [Concomitant]
     Dosage: 10 MG, UNK
  7. DIGOXIN [Concomitant]
     Dosage: 0.125 MG, UNK
  8. ALLOPURINOL [Concomitant]
     Dosage: 300 MG, UNK
  9. WARFARIN [Concomitant]
     Dosage: 10 MG, UNK
  10. POTASSIUM [Concomitant]
     Dosage: 75 MG, UNK
  11. IRON [Concomitant]
     Dosage: 50 MG, UNK
  12. MAGNESIUM [Concomitant]
     Dosage: 300 MG, UNK
  13. REVLIMID [Concomitant]
     Dosage: 10 MG, UNK
  14. VITAMIN D [Concomitant]
     Dosage: 1000 U, UNK

REACTIONS (1)
  - Urinary tract infection [Unknown]
